FAERS Safety Report 19148802 (Version 24)
Quarter: 2024Q2

REPORT INFORMATION
  Report Type: Spontaneous
  Country: CA (occurrence: CA)
  Receive Date: 20210416
  Receipt Date: 20240624
  Transmission Date: 20240716
  Serious: Yes (Death, Life-Threatening, Hospitalization, Other)
  Sender: FDA-Public Use
  Company Number: CA-ANIPHARMA-2021-CA-000457

PATIENT
  Age: 65 Year
  Sex: Male

DRUGS (104)
  1. CANDESARTAN [Suspect]
     Active Substance: CANDESARTAN
     Indication: Product used for unknown indication
     Dosage: 32 MG DAILY / 1 DF DAILY / UNK / 32 MG DAILY / 1 DF DAILY / UNK / 1 DF DAILY
     Route: 048
  2. BETAMETHASONE\CLOTRIMAZOLE [Suspect]
     Active Substance: BETAMETHASONE\CLOTRIMAZOLE
     Dosage: UNKNOWN DOSE AND FREQUENCY
     Route: 065
  3. AZATHIOPRINE SODIUM [Suspect]
     Active Substance: AZATHIOPRINE SODIUM
     Dosage: 1 DF DAILY
     Route: 065
  4. DILTIAZEM [Suspect]
     Active Substance: DILTIAZEM
     Dosage: DOSE TEXT: 120 MILLIGRAM
     Route: 065
  5. ROSUVASTATIN [Concomitant]
     Active Substance: ROSUVASTATIN
     Route: 065
  6. PENICILLIN G SODIUM [Suspect]
     Active Substance: PENICILLIN G SODIUM
     Route: 065
  7. PENICILLIN V [Suspect]
     Active Substance: PENICILLIN V
     Route: 065
  8. FINASTERIDE [Suspect]
     Active Substance: FINASTERIDE
     Route: 065
  9. THIAMINE [Suspect]
     Active Substance: THIAMINE
     Route: 065
     Dates: start: 20231123, end: 20231124
  10. BUDESONIDE\FORMOTEROL FUMARATE DIHYDRATE [Suspect]
     Active Substance: BUDESONIDE\FORMOTEROL FUMARATE DIHYDRATE
     Route: 055
  11. BUDESONIDE [Suspect]
     Active Substance: BUDESONIDE
     Route: 055
  12. TAMSULOSIN HYDROCHLORIDE [Suspect]
     Active Substance: TAMSULOSIN HYDROCHLORIDE
     Dosage: 1 DF DAILY / DOSE TEXT: 1 EVERY 1 DAYS
  13. BENFOTIAMINE [Suspect]
     Active Substance: BENFOTIAMINE
  14. BASAGLAR [Suspect]
     Active Substance: INSULIN GLARGINE
     Dosage: 1 DF UNK / 1 DF DAILY / UNK
     Route: 058
  15. SENNOSIDES [Suspect]
     Active Substance: SENNOSIDES
  16. NOVORAPID [Suspect]
     Active Substance: INSULIN ASPART
     Dosage: 1 DF DAILY
  17. DOMPERIDONE MALEATE [Suspect]
     Active Substance: DOMPERIDONE MALEATE
     Dosage: 10 MG DAILY / 1 DF DAILY / 1 DF Q12H / DOSE TEXT: 1 EVERY 1 DAYS / DOSE TEXT: 2 EVERY 1 DAYS / 20 MG
     Route: 065
  18. FLOMAX [Suspect]
     Active Substance: TAMSULOSIN HYDROCHLORIDE
     Dosage: 1 DF DAILY / UNK / UNK / UNK / UNK / UNK / UNK / DOSE TEXT: UNK UNK, QD / DOSE TEXT: UNK UNK, QD / D
     Route: 065
  19. FUROSEMIDE [Suspect]
     Active Substance: FUROSEMIDE
     Dosage: 40 MG DAILY / 1 DF DAILY / DOSE TEXT: 1 EVERY 1 DAYS / UNK / 1 DF DAILY / UNK / 2 DF DAILY / UNK / U
     Route: 065
  20. GLUCAGON [Suspect]
     Active Substance: GLUCAGON\GLUCAGON HYDROCHLORIDE\WATER
     Dosage: 1 MG UNK / 1 MG UNK / 1 MG DAILY / UNK / UNK / UNK / 1 MG DAILY / 1 MG DAILY
     Route: 065
  21. IMURAN [Suspect]
     Active Substance: AZATHIOPRINE
     Dosage: 1 DF DAILY / UNK
     Route: 065
  22. INSULIN GLARGINE [Suspect]
     Active Substance: INSULIN GLARGINE
     Dosage: 1 DF DAILY / 1 DF DAILY / 1 DF DAILY / UNK / UNK / UNK / DOSE TEXT: UNK UNK, QD / DOSE TEXT: 1 DOSAG
     Route: 058
  23. LASIX [Suspect]
     Active Substance: FUROSEMIDE
     Dosage: 1 DF QD / UNK
     Route: 065
  24. LEVOFLOXACIN [Suspect]
     Active Substance: LEVOFLOXACIN
     Dosage: 750 MG DAILY / 3 DF DAILY / UNK / 1 DF DAILY / UNK / UNK / UNK / DOSE TEXT: 8 HOURS / DOSE TEXT: 8 H
     Route: 065
  25. PANTOPRAZOLE MAGNESIUM [Suspect]
     Active Substance: PANTOPRAZOLE MAGNESIUM
     Dosage: 2 DF DAILY / UNK / DOSE TEXT: 2 EVERY 1 DAYS
     Route: 065
  26. MAGNESIUM OXIDE [Suspect]
     Active Substance: MAGNESIUM OXIDE
     Dosage: 420 MG BID / 1 DF DAILY / 2 DF Q12H / 1 DF BID / UNK / UNK / UNK / UNK / 2 DF DAILY
     Route: 065
  27. PREDNISONE [Suspect]
     Active Substance: PREDNISONE
     Dosage: 80 MG DAILY / DOSE TEXT: UNKNOWN DOSE AND FREQUENCY / DOSE TEXT: UNKNOWN DOSE AND FREQUENCY / UNK /
     Route: 065
  28. ALBUTEROL [Suspect]
     Active Substance: ALBUTEROL
     Dosage: 100 UG DAILY / UNK / 1 DF DAILY / 1 DF DAILY
     Route: 065
  29. ALBUTEROL SULFATE [Suspect]
     Active Substance: ALBUTEROL SULFATE
     Dosage: UNKNOWN DOSE AND FREQUENCY
     Route: 065
  30. HERBALS\SENNOSIDES [Suspect]
     Active Substance: HERBALS\SENNOSIDES
     Dosage: UNKNOWN DOSE AND FREQUENCY
     Route: 065
  31. TAMSULOSIN [Suspect]
     Active Substance: TAMSULOSIN
     Dosage: 1 DF DAILY / DOSE TEXT: 1 EVERY 1 DAYS
     Route: 065
  32. TRELEGY ELLIPTA [Suspect]
     Active Substance: FLUTICASONE FUROATE\UMECLIDINIUM BROMIDE\VILANTEROL TRIFENATATE
     Dosage: 1 DF DAILY / DOSE TEXT: 1 EVERY 1 DAYS / UNK
     Route: 065
  33. ANORO ELLIPTA [Suspect]
     Active Substance: UMECLIDINIUM BROMIDE\VILANTEROL TRIFENATATE
     Dosage: 1 DF DAILY / UNK / DOSE TEXT: 1 EVERY 1 DAYS
     Route: 065
  34. ERGOCALCIFEROL [Suspect]
     Active Substance: ERGOCALCIFEROL
     Route: 065
  35. SULFAMETHOXAZOLE\TRIMETHOPRIM [Suspect]
     Active Substance: SULFAMETHOXAZOLE\TRIMETHOPRIM
     Dosage: UNKNOWN DOSE AND FREQUENCY
     Route: 065
  36. CANDESARTAN CILEXETIL AND HYDROCHLOROTHIAZIDE [Suspect]
     Active Substance: CANDESARTAN CILEXETIL\HYDROCHLOROTHIAZIDE
     Indication: Product used for unknown indication
     Dosage: 1 DF DAILY / DOSE TEXT: 1 EVERY 1 DAYS / DOSE TEXT: 1 EVERY 1 DAYS / DOSE TEXT: 1 EVERY 1 DAYS / DOS
     Route: 048
  37. INSULIN ASPART [Suspect]
     Active Substance: INSULIN ASPART
     Dosage: UNKNOWN DOSE AND FREQUENCY
     Route: 058
  38. LEXIN [Suspect]
     Active Substance: CEPHALEXIN
     Dosage: UNKNOWN DOSE AND FREQUENCY
     Route: 065
  39. PANTOPRAZOLE SODIUM [Suspect]
     Active Substance: PANTOPRAZOLE SODIUM
     Dosage: 40 UG BID / 1 DF Q12H / DOSE TEXT: 2 EVERY 1 DAYS
     Route: 065
  40. CALCIUM SENNOSIDES [Suspect]
     Active Substance: SENNOSIDES
     Route: 065
  41. LEVOFLOXACIN [Suspect]
     Active Substance: LEVOFLOXACIN
     Dosage: 3 DF DAILY
     Route: 065
  42. VITAMIN D [Suspect]
     Active Substance: VITAMIN D NOS
     Dosage: UNKNOWN DOSE AND FREQUENCY
     Route: 065
  43. BETAMETHASONE [Suspect]
     Active Substance: BETAMETHASONE\BETAMETHASONE DIPROPIONATE
     Dosage: UNKNOWN DOSE AND FREQUENCY
     Route: 065
  44. CLOTRIMAZOLE [Suspect]
     Active Substance: CLOTRIMAZOLE
     Dosage: UNKNOWN DOSE AND FREQUENCY
     Route: 065
  45. BETA GLUCAN [Suspect]
     Active Substance: BETA GLUCAN
     Route: 065
  46. RHINOCORT [Suspect]
     Active Substance: BUDESONIDE
     Route: 065
  47. SULFADIAZINE\TRIMETHOPRIM [Suspect]
     Active Substance: SULFADIAZINE\TRIMETHOPRIM
     Route: 065
  48. PANTOPRAZOLE MAGNESIUM [Suspect]
     Active Substance: PANTOPRAZOLE MAGNESIUM
     Route: 065
  49. UMECLIDINIUM BROMIDE [Suspect]
     Active Substance: UMECLIDINIUM BROMIDE
     Route: 065
  50. UMECLIDINIUM BROMIDE\VILANTEROL TRIFENATATE [Suspect]
     Active Substance: UMECLIDINIUM BROMIDE\VILANTEROL TRIFENATATE
     Route: 065
  51. VITAMIN D3 [Suspect]
     Active Substance: CHOLECALCIFEROL
     Route: 065
  52. ALBUTEROL [Suspect]
     Active Substance: ALBUTEROL
     Route: 065
  53. CEFUROXIME AXETIL [Suspect]
     Active Substance: CEFUROXIME AXETIL
     Dosage: 500 MG DAILY / 1 DF DAILY / UNK / UNK / UNK / UNK / UNK / UNK / 500 MG DAILY / DOSE TEXT: UNK UNK, B
     Route: 065
  54. AZITHROMYCIN ANHYDROUS [Suspect]
     Active Substance: AZITHROMYCIN ANHYDROUS
     Dosage: 1 DF DAILY
     Route: 065
  55. CALCIUM CARBONATE [Suspect]
     Active Substance: CALCIUM CARBONATE
     Dosage: 500 MG DAILY / 1 DF DAILY / 2 DF DAILY / DOSE TEXT: 1 EVERY 1 DAYS / 1 DF DAILY / UNK
     Route: 065
  56. ALENDRONATE SODIUM [Suspect]
     Active Substance: ALENDRONATE SODIUM
     Dosage: 70 MG WEEK / 1 DF WEEK / UNK
     Route: 065
  57. SENNOSIDES [Suspect]
     Active Substance: SENNOSIDES
     Route: 065
  58. AZITHROMYCIN DIHYDRATE [Suspect]
     Active Substance: AZITHROMYCIN DIHYDRATE
     Dosage: 2 DF DAILY / 1 DF DAILY / UNK
     Route: 065
  59. CEPHALEXIN [Suspect]
     Active Substance: CEPHALEXIN
     Route: 065
  60. GLUCAGON HYDROCHLORIDE [Suspect]
     Active Substance: GLUCAGON HYDROCHLORIDE
     Route: 065
  61. MORNIFLUMATE [Suspect]
     Active Substance: MORNIFLUMATE
     Route: 065
  62. BETAMETHASONE DIPROPIONATE [Suspect]
     Active Substance: BETAMETHASONE DIPROPIONATE
     Dosage: UNKNOWN DOSE AND FREQUENCY
     Route: 065
  63. CEFUROXIME [Suspect]
     Active Substance: CEFUROXIME
     Dosage: 500 MG BID / 1 DF DAILY / 1 DF Q12H / DOSE TEXT: 1 EVERY 1 DAYS / DOSE TEXT: 2 EVERY 1 DAYS / 2 DF D
     Route: 065
  64. SENNA [Suspect]
     Active Substance: SENNA LEAF\SENNOSIDES\SENNOSIDES A AND B
     Dosage: UNKNOWN DOSE AND FREQUENCY
     Route: 065
  65. METFORMIN HYDROCHLORIDE [Suspect]
     Active Substance: METFORMIN HYDROCHLORIDE
     Dosage: 4 DF DAILY / 500 MG BID / 2 DF Q12H / DOSE TEXT: 1 EVERY 1 DAYS / 1 DF DAILY / 2 DF DAILY / UNK / 4
     Route: 065
  66. AZATHIOPRINE SODIUM [Suspect]
     Active Substance: AZATHIOPRINE SODIUM
     Route: 065
  67. CEFUROXIME AXETIL [Suspect]
     Active Substance: CEFUROXIME AXETIL
     Dosage: UNK / 500 MG DAILY / 500 MG Q12H
     Route: 065
  68. PANTOPRAZOLE SODIUM [Suspect]
     Active Substance: PANTOPRAZOLE SODIUM
     Dosage: 40 MG BID / UNK / UNK
     Route: 065
  69. CHOLECALCIFEROL [Suspect]
     Active Substance: CHOLECALCIFEROL
     Route: 065
  70. SULFADIAZINE [Suspect]
     Active Substance: SULFADIAZINE
     Route: 065
  71. TAMSULOSIN [Suspect]
     Active Substance: TAMSULOSIN
     Route: 065
  72. LEVOFLOXACIN [Suspect]
     Active Substance: LEVOFLOXACIN
     Dosage: 750 MG DAILY / 750 MG DAILY
     Route: 065
  73. FLOMAX [Suspect]
     Active Substance: TAMSULOSIN HYDROCHLORIDE
     Route: 065
  74. ALENDRONATE [Suspect]
     Active Substance: ALENDRONATE SODIUM
     Dosage: 70 MG WEEK / UNK / 100 MG DAILY / 70 MG DAILY / UNK / UNK / UNK / UNK / DOSE TEXT: UNK UNK 1/WEEK /
     Route: 065
  75. LIRAGLUTIDE [Suspect]
     Active Substance: LIRAGLUTIDE
     Route: 065
  76. PENICILLIN V POTASSIUM [Suspect]
     Active Substance: PENICILLIN V POTASSIUM
     Route: 065
  77. SERTRALINE HYDROCHLORIDE [Suspect]
     Active Substance: SERTRALINE HYDROCHLORIDE
     Route: 065
  78. SPIRIVA [Suspect]
     Active Substance: TIOTROPIUM BROMIDE MONOHYDRATE
     Route: 065
  79. NUCALA [Suspect]
     Active Substance: MEPOLIZUMAB
     Route: 065
  80. LEVOTHYROXINE SODIUM [Suspect]
     Active Substance: LEVOTHYROXINE SODIUM
     Route: 065
  81. MONTELUKAST SODIUM [Suspect]
     Active Substance: MONTELUKAST SODIUM
     Route: 065
  82. PANTOPRAZOLE SODIUM [Suspect]
     Active Substance: PANTOPRAZOLE SODIUM
     Dosage: DOSE TEXT: 1 DOSAGE FORM / 2 DF DAILY / DOSE TEXT: UNK UNK, QD / UNK / 4 DF DAILY / 1 DF Q12H / DOSE
     Route: 065
  83. RUPATADINE [Suspect]
     Active Substance: RUPATADINE
     Route: 065
  84. AZATHIOPRINE [Suspect]
     Active Substance: AZATHIOPRINE
     Dosage: 100 MG QD / 50 MG DAILY / 1 DF DAILY / UNK / 100 MG DAILY / 2 DF DAILY / UNK / UNK / UNK / UNK / UNK
     Route: 065
  85. CHOLECALCIFEROL [Suspect]
     Active Substance: CHOLECALCIFEROL
     Route: 065
  86. SEPTRA [Suspect]
     Active Substance: SULFAMETHOXAZOLE\TRIMETHOPRIM
     Dosage: UNK / DOSE TEXT: SULFAMETHOXAZOLE, TRIMETHOPRIM GENERIC / 3 DF WEEK / UNK / UNK / UNK
     Route: 065
  87. AZITHROMYCIN ANHYDROUS [Suspect]
     Active Substance: AZITHROMYCIN ANHYDROUS
     Dosage: 1 DF DAILY / UNK / UNK / UNK / UNK / UNK / 250 MG DAILY
     Route: 065
  88. LEVOFLOXACIN HEMIHYDRATE [Suspect]
     Active Substance: LEVOFLOXACIN
     Dosage: 750 MG DAILY
     Route: 065
  89. AMOXICILLIN\CLAVULANATE POTASSIUM [Suspect]
     Active Substance: AMOXICILLIN\CLAVULANATE POTASSIUM
     Dosage: 750 MG DAILY
     Route: 065
  90. BREO ELLIPTA [Suspect]
     Active Substance: FLUTICASONE FUROATE\VILANTEROL TRIFENATATE
     Dosage: 750 MG DAILY
     Route: 065
  91. CICLESONIDE [Suspect]
     Active Substance: CICLESONIDE
     Dosage: 750 MG DAILY
     Route: 065
  92. DOXAZOSIN [Suspect]
     Active Substance: DOXAZOSIN MESYLATE
     Dosage: 750 MG DAILY
     Route: 065
  93. DUTASTERIDE [Suspect]
     Active Substance: DUTASTERIDE
     Dosage: 750 MG DAILY
     Route: 065
  94. ELIQUIS [Suspect]
     Active Substance: APIXABAN
     Dosage: 750 MG DAILY
     Route: 065
  95. AZITHROMYCIN [Suspect]
     Active Substance: AZITHROMYCIN
     Dosage: 1 DF BID / 250 MG DAILY / 2 DF DAILY / DOSE TEXT: 2 EVERY 1 DAYS / DOSE TEXT: 1 EVERY 1 DAYS / 2 UNK
     Route: 065
  96. ESCITALOPRAM [Suspect]
     Active Substance: ESCITALOPRAM OXALATE
     Dosage: 750 MG DAILY
     Route: 065
  97. FORMOTEROL [Suspect]
     Active Substance: FORMOTEROL
     Dosage: 750 MG DAILY
     Route: 065
  98. HYDROCHLOROTHIAZIDE [Suspect]
     Active Substance: HYDROCHLOROTHIAZIDE
     Dosage: 750 MG DAILY
     Route: 065
  99. MOXIFLOXACIN [Suspect]
     Active Substance: MOXIFLOXACIN
     Dosage: 750 MG DAILY
     Route: 065
  100. OMNARIS [Suspect]
     Active Substance: CICLESONIDE
     Dosage: 750 MG DAILY
     Route: 065
  101. ZENHALE [Suspect]
     Active Substance: FORMOTEROL FUMARATE\MOMETASONE FUROATE
     Dosage: 750 MG DAILY
     Route: 065
  102. SYMBICORT [Suspect]
     Active Substance: BUDESONIDE\FORMOTEROL FUMARATE DIHYDRATE
     Route: 055
  103. LEVOTHYROXINE [Concomitant]
     Active Substance: LEVOTHYROXINE\LEVOTHYROXINE SODIUM
     Route: 065
  104. ADVAIR HFA [Suspect]
     Active Substance: FLUTICASONE PROPIONATE\SALMETEROL XINAFOATE
     Route: 065

REACTIONS (41)
  - Asthma [Fatal]
  - Pain in extremity [Fatal]
  - Pulmonary alveolar haemorrhage [Fatal]
  - Pulmonary fibrosis [Fatal]
  - Vasculitis [Fatal]
  - Respiratory symptom [Fatal]
  - Sleep disorder due to a general medical condition [Fatal]
  - Vasculitis [Fatal]
  - Wheezing [Fatal]
  - Condition aggravated [Fatal]
  - Hypothyroidism [Fatal]
  - Therapeutic product effect incomplete [Fatal]
  - Anxiety [Fatal]
  - Eosinophilic granulomatosis with polyangiitis [Fatal]
  - Full blood count abnormal [Fatal]
  - Pulmonary vasculitis [Fatal]
  - Antineutrophil cytoplasmic antibody positive [Fatal]
  - Forced expiratory volume decreased [Fatal]
  - Total lung capacity abnormal [Fatal]
  - Thrombosis [Fatal]
  - Dyspnoea [Fatal]
  - Spirometry abnormal [Fatal]
  - Pulmonary embolism [Fatal]
  - Productive cough [Fatal]
  - Normochromic normocytic anaemia [Fatal]
  - Nodule [Fatal]
  - Dust allergy [Fatal]
  - Conjunctivitis allergic [Fatal]
  - Arteriosclerosis coronary artery [Fatal]
  - Arteriosclerosis [Fatal]
  - Capillaritis [Fatal]
  - Haemoptysis [Fatal]
  - Pulmonary vasculitis [Fatal]
  - Hypoxia [Unknown]
  - Mite allergy [Fatal]
  - Mycotic allergy [Fatal]
  - Loss of personal independence in daily activities [Fatal]
  - Lung disorder [Fatal]
  - Neuritis [Fatal]
  - Neurological symptom [Fatal]
  - Obstructive airways disorder [Fatal]
